FAERS Safety Report 24597065 (Version 1)
Quarter: 2024Q4

REPORT INFORMATION
  Report Type: Spontaneous
  Country: US (occurrence: US)
  Receive Date: 20241110
  Receipt Date: 20241110
  Transmission Date: 20250115
  Serious: No
  Sender: SANOFI AVENTIS
  Company Number: US-SA-2024SA308094

PATIENT
  Sex: Female

DRUGS (2)
  1. DUPIXENT [Suspect]
     Active Substance: DUPILUMAB
     Indication: Dermatitis allergic
     Dosage: 300 MG, QOW
     Route: 058
  2. KEPIVANCE [Concomitant]
     Active Substance: PALIFERMIN

REACTIONS (2)
  - Skin discolouration [Not Recovered/Not Resolved]
  - Condition aggravated [Not Recovered/Not Resolved]
